FAERS Safety Report 12721655 (Version 4)
Quarter: 2016Q4

REPORT INFORMATION
  Report Type: Report from Study
  Country: None (occurrence: AU)
  Receive Date: 20160907
  Receipt Date: 20161103
  Transmission Date: 20170207
  Serious: Yes (Death, Hospitalization)
  Sender: FDA-Public Use
  Company Number: AU-ABBVIE-16K-008-1719180-00

PATIENT
  Age: 84 Year
  Sex: Male

DRUGS (5)
  1. DUODOPA [Suspect]
     Active Substance: CARBIDOPA\LEVODOPA
     Dosage: 5ML/HR MANE + CONTINUOUS 4.2ML/HR. ON  0600, OFF -2000.
     Route: 050
  2. DUODOPA [Suspect]
     Active Substance: CARBIDOPA\LEVODOPA
     Indication: PARKINSON^S DISEASE
     Dosage: 16 HR INFUSION
     Route: 050
     Dates: start: 20150324
  3. CELECOXIB. [Concomitant]
     Active Substance: CELECOXIB
     Indication: PRODUCT USED FOR UNKNOWN INDICATION
  4. SINEMET [Concomitant]
     Active Substance: CARBIDOPA\LEVODOPA
     Indication: PRODUCT USED FOR UNKNOWN INDICATION
     Dosage: 200/50 MG, EVERY NIGHT
  5. ASPIRIN. [Concomitant]
     Active Substance: ASPIRIN
     Indication: PRODUCT USED FOR UNKNOWN INDICATION

REACTIONS (15)
  - Aspiration [Fatal]
  - Mobility decreased [Unknown]
  - Citrobacter infection [Unknown]
  - Fall [Unknown]
  - Cardiac arrest [Fatal]
  - Gastroenteritis norovirus [Recovered/Resolved]
  - Arthralgia [Unknown]
  - Subcutaneous haematoma [Unknown]
  - Diverticulum intestinal [Unknown]
  - Diarrhoea [Recovered/Resolved]
  - C-reactive protein increased [Recovered/Resolved]
  - Hypoxia [Fatal]
  - Vomiting [Fatal]
  - Anaemia [Unknown]
  - Bacteriuria [Unknown]

NARRATIVE: CASE EVENT DATE: 20160901
